FAERS Safety Report 21910149 (Version 1)
Quarter: 2023Q1

REPORT INFORMATION
  Report Type: Spontaneous
  Country: US (occurrence: US)
  Receive Date: 20230125
  Receipt Date: 20230125
  Transmission Date: 20230417
  Serious: No
  Sender: FDA-Public Use
  Company Number: US-ALLERGAN-2202103US

PATIENT
  Age: 18 Year
  Sex: Female
  Weight: 80.2 kg

DRUGS (4)
  1. BOTOX [Suspect]
     Active Substance: ONABOTULINUMTOXINA
     Indication: Migraine
     Dosage: UNK UNK, SINGLE
     Route: 030
     Dates: start: 20210216, end: 20210216
  2. ALLERGY RELIEF [Concomitant]
     Dosage: 10 MG, QD
     Route: 048
  3. MAGNESIUM [Concomitant]
     Active Substance: MAGNESIUM
     Dosage: 200 MG 2 TABLETS WITH A MEAL ONCE A DAY
     Route: 048
  4. RIBOFLAVIN [Concomitant]
     Active Substance: RIBOFLAVIN
     Indication: Migraine prophylaxis
     Dosage: 400 MG, QD
     Route: 048

REACTIONS (1)
  - Off label use [Unknown]

NARRATIVE: CASE EVENT DATE: 20220216
